FAERS Safety Report 20862539 (Version 4)
Quarter: 2022Q3

REPORT INFORMATION
  Report Type: Report from Study
  Country: AU (occurrence: AU)
  Receive Date: 20220523
  Receipt Date: 20220810
  Transmission Date: 20221026
  Serious: Yes (Other)
  Sender: FDA-Public Use
  Company Number: AU-NALPROPION PHARMACEUTICALS INC.-AU-2022CUR021660

PATIENT
  Age: 62 Year
  Sex: Female
  Weight: 67 kg

DRUGS (6)
  1. CONTRAVE [Suspect]
     Active Substance: BUPROPION HYDROCHLORIDE\NALTREXONE HYDROCHLORIDE
     Indication: Weight control
     Dosage: 1 DOSAGE FORM, QD (MANE)
     Route: 065
     Dates: start: 20220501
  2. CONTRAVE [Suspect]
     Active Substance: BUPROPION HYDROCHLORIDE\NALTREXONE HYDROCHLORIDE
     Dosage: UNK
     Route: 065
  3. CONTRAVE [Suspect]
     Active Substance: BUPROPION HYDROCHLORIDE\NALTREXONE HYDROCHLORIDE
     Dosage: 3 DOSAGE FORM, QD 2 MANE: 1 NOCTE
     Route: 065
  4. CONTRAVE [Suspect]
     Active Substance: BUPROPION HYDROCHLORIDE\NALTREXONE HYDROCHLORIDE
     Dosage: 2 DOSAGE FORM, BID
     Route: 065
  5. EMPAGLIFLOZIN\METFORMIN HYDROCHLORIDE [Concomitant]
     Active Substance: EMPAGLIFLOZIN\METFORMIN HYDROCHLORIDE
     Indication: Diabetes mellitus
     Dosage: 12.5/500MG
  6. TWYNSTA [Concomitant]
     Active Substance: AMLODIPINE BESYLATE\TELMISARTAN
     Indication: Hypertension
     Dosage: 80/5

REACTIONS (7)
  - Dyspnoea [Recovered/Resolved]
  - Gastrooesophageal reflux disease [Recovered/Resolved]
  - Taste disorder [Recovering/Resolving]
  - Nausea [Recovered/Resolved]
  - Thirst [Not Recovered/Not Resolved]
  - Tremor [Recovering/Resolving]
  - Anxiety [Recovered/Resolved]

NARRATIVE: CASE EVENT DATE: 20220504
